FAERS Safety Report 17263044 (Version 1)
Quarter: 2020Q1

REPORT INFORMATION
  Report Type: Spontaneous
  Country: US (occurrence: US)
  Receive Date: 20200113
  Receipt Date: 20200113
  Transmission Date: 20200409
  Serious: Yes (Death, Hospitalization)
  Sender: FDA-Public Use
  Company Number: US-BAYER-2020-004208

PATIENT
  Age: 70 Year
  Sex: Female

DRUGS (14)
  1. ACETYLSALICYLIC ACID [Suspect]
     Active Substance: ASPIRIN
     Route: 048
  2. ROSUVASTATIN. [Suspect]
     Active Substance: ROSUVASTATIN
  3. BUPROPION. [Suspect]
     Active Substance: BUPROPION
  4. GABAPENTIN. [Suspect]
     Active Substance: GABAPENTIN
  5. ACARBOSE. [Suspect]
     Active Substance: ACARBOSE
     Route: 048
  6. CARVEDILOL. [Suspect]
     Active Substance: CARVEDILOL
  7. PANTOPRAZOLE [Suspect]
     Active Substance: PANTOPRAZOLE
  8. PRASUGREL. [Suspect]
     Active Substance: PRASUGREL
  9. SOTALOL. [Suspect]
     Active Substance: SOTALOL
  10. POTASSIUM [Suspect]
     Active Substance: POTASSIUM
  11. SERTRALINE [Suspect]
     Active Substance: SERTRALINE HYDROCHLORIDE
  12. RISPERIDONE. [Suspect]
     Active Substance: RISPERIDONE
  13. FUROSEMIDE. [Suspect]
     Active Substance: FUROSEMIDE
  14. THYROID [Suspect]
     Active Substance: LEVOTHYROXINE\LIOTHYRONINE

REACTIONS (2)
  - Toxicity to various agents [Fatal]
  - Completed suicide [Fatal]
